FAERS Safety Report 5441529-7 (Version None)
Quarter: 2007Q3

REPORT INFORMATION
  Report Type: 
  Country: None (occurrence: None)
  Receive Date: 20070829
  Receipt Date: 20070816
  Transmission Date: 20080115
  Serious: Yes (Other)
  Sender: FDA-Public Use
  Company Number: 2007US001944

PATIENT
  Age: 68 Year
  Sex: Female

DRUGS (2)
  1. AMBISOME [Suspect]
     Indication: FUNGAEMIA
     Dosage: 2.5 MG/KG, UID/QD, IV DRIP
     Route: 041
     Dates: start: 20070712, end: 20070718
  2. CEFOTIAM HYDROCHLORIDE [Concomitant]

REACTIONS (6)
  - ABNORMAL BEHAVIOUR [None]
  - BLOOD PRESSURE INCREASED [None]
  - CONVULSION [None]
  - DEPRESSED LEVEL OF CONSCIOUSNESS [None]
  - NAUSEA [None]
  - SUICIDAL IDEATION [None]
